FAERS Safety Report 10267527 (Version 1)
Quarter: 2014Q2

REPORT INFORMATION
  Report Type: Spontaneous
  Country: US (occurrence: None)
  Receive Date: 20140626
  Receipt Date: 20140626
  Transmission Date: 20141212
  Serious: No
  Sender: FDA-Public Use
  Company Number: None

PATIENT
  Age: 82 Year
  Sex: Male
  Weight: 67.7 kg

DRUGS (1)
  1. HEPARIN [Suspect]
     Dosage: 500 UNITS TID SQ
     Dates: start: 20140610, end: 20140621

REACTIONS (1)
  - Heparin-induced thrombocytopenia [None]
